FAERS Safety Report 23223946 (Version 1)
Quarter: 2023Q4

REPORT INFORMATION
  Report Type: Spontaneous
  Country: DE (occurrence: DE)
  Receive Date: 20231124
  Receipt Date: 20231124
  Transmission Date: 20240110
  Serious: Yes (Hospitalization, Other)
  Sender: FDA-Public Use
  Company Number: DE-NOVITIUMPHARMA-2023DENVP02027

PATIENT
  Age: 65 Year
  Sex: Female

DRUGS (3)
  1. ACYCLOVIR [Suspect]
     Active Substance: ACYCLOVIR
     Indication: Oral herpes
     Route: 048
  2. Rauwolfia-serpentine [Concomitant]
     Indication: Hypertension
  3. Withania-somnifera [Concomitant]
     Indication: Thinking abnormal

REACTIONS (1)
  - Drug-induced liver injury [Recovering/Resolving]
